FAERS Safety Report 13800755 (Version 1)
Quarter: 2017Q3

REPORT INFORMATION
  Report Type: Spontaneous
  Country: US (occurrence: US)
  Receive Date: 20170727
  Receipt Date: 20170727
  Transmission Date: 20171127
  Serious: No
  Sender: FDA-Public Use
  Company Number: US-DSJP-DSU-2017-111608

PATIENT
  Age: 63 Year
  Sex: Male
  Weight: 136.5 kg

DRUGS (1)
  1. SAVAYSA [Suspect]
     Active Substance: EDOXABAN TOSYLATE
     Indication: ATRIAL FIBRILLATION
     Dosage: 60 MG, UNK
     Route: 065
     Dates: start: 2016, end: 20170405

REACTIONS (2)
  - No adverse event [Unknown]
  - Treatment noncompliance [Not Recovered/Not Resolved]

NARRATIVE: CASE EVENT DATE: 20170405
